FAERS Safety Report 9050603 (Version 2)
Quarter: 2013Q2

REPORT INFORMATION
  Report Type: Spontaneous
  Country: US (occurrence: US)
  Receive Date: 20130205
  Receipt Date: 20130404
  Transmission Date: 20140414
  Serious: No
  Sender: FDA-Public Use
  Company Number: US-009507513-1302USA001757

PATIENT
  Age: 1 Year
  Sex: Female
  Weight: 12.7 kg

DRUGS (2)
  1. MIRALAX [Suspect]
     Indication: CONSTIPATION
     Dosage: 8.5 G, QAM
     Route: 048
     Dates: start: 20121123
  2. MIRALAX [Suspect]
     Indication: MEDICAL OBSERVATION

REACTIONS (3)
  - Drug administered to patient of inappropriate age [Unknown]
  - Off label use [Unknown]
  - Incorrect drug administration duration [Unknown]
